FAERS Safety Report 6650702-1 (Version None)
Quarter: 2010Q1

REPORT INFORMATION
  Report Type: 
  Country: None (occurrence: None)
  Receive Date: 20100325
  Receipt Date: 20100316
  Transmission Date: 20100710
  Serious: No
  Sender: FDA-Public Use
  Company Number: US-BIOGENIDEC-2010BI008704

PATIENT
  Sex: Female

DRUGS (2)
  1. AVONEX [Suspect]
     Indication: MULTIPLE SCLEROSIS
     Route: 030
     Dates: start: 20081001, end: 20090101
  2. AVONEX [Suspect]
     Route: 030
     Dates: start: 20090101

REACTIONS (3)
  - ARTHRALGIA [None]
  - MULTIPLE SCLEROSIS [None]
  - VERTIGO [None]
